FAERS Safety Report 4871616-3 (Version None)
Quarter: 2006Q1

REPORT INFORMATION
  Report Type: 
  Country: None (occurrence: None)
  Receive Date: 20060104
  Receipt Date: 20051229
  Transmission Date: 20060701
  Serious: Yes (Other)
  Sender: FDA-Public Use
  Company Number: US-JNJFOC-20050303927

PATIENT
  Sex: Female

DRUGS (10)
  1. DURAGESIC-100 [Suspect]
     Route: 062
     Dates: start: 20050303
  2. DURAGESIC-100 [Suspect]
     Route: 062
     Dates: start: 20050303
  3. BEXTRA [Concomitant]
     Indication: ANTIINFLAMMATORY THERAPY
     Route: 048
  4. OXYDOSE [Concomitant]
     Route: 048
  5. OXYDOSE [Concomitant]
     Indication: BREAKTHROUGH PAIN
     Dosage: 1/2 TO 1 ML Q 3-4 HOURS
     Route: 048
  6. METHADONE [Concomitant]
     Route: 048
  7. DIAZEPAM [Concomitant]
     Route: 048
  8. NICOTINE [Concomitant]
     Indication: SMOKING CESSATION THERAPY
     Route: 062
  9. INDERAL [Concomitant]
     Indication: DRUG USE FOR UNKNOWN INDICATION
  10. CARISOPRODOL [Concomitant]
     Indication: PAIN

REACTIONS (2)
  - DRUG WITHDRAWAL SYNDROME [None]
  - GRAND MAL CONVULSION [None]
